FAERS Safety Report 6525116-5 (Version None)
Quarter: 2010Q1

REPORT INFORMATION
  Report Type: 
  Country: None (occurrence: None)
  Receive Date: 20100104
  Receipt Date: 20091222
  Transmission Date: 20100710
  Serious: Yes (Other)
  Sender: FDA-Public Use
  Company Number: BE-BAYER-200936322GPV

PATIENT
  Sex: Female

DRUGS (1)
  1. AVELOX [Suspect]
     Indication: PNEUMONIA
     Dosage: TOTAL DAILY DOSE: 400 MG  UNIT DOSE: 400 MG
     Route: 048
     Dates: start: 20091010, end: 20091019

REACTIONS (6)
  - ASTHMATIC CRISIS [None]
  - BODY TEMPERATURE INCREASED [None]
  - BRONCHITIS [None]
  - FATIGUE [None]
  - INCREASED BRONCHIAL SECRETION [None]
  - RESPIRATORY DISORDER [None]
